FAERS Safety Report 4551925-8 (Version None)
Quarter: 2005Q1

REPORT INFORMATION
  Report Type: 
  Country: None (occurrence: None)
  Receive Date: 20050113
  Receipt Date: 20050107
  Transmission Date: 20050727
  Serious: Yes (Hospitalization, Other)
  Sender: FDA-Public Use
  Company Number: 05-01-0038

PATIENT
  Age: 74 Year
  Sex: Female

DRUGS (1)
  1. CLOZAPINE [Suspect]
     Indication: SCHIZOPHRENIA
     Dosage: 25MG QD ORAL
     Route: 048
     Dates: start: 20040801

REACTIONS (3)
  - CLOSTRIDIAL INFECTION [None]
  - PNEUMONIA [None]
  - SPUTUM RETENTION [None]
